FAERS Safety Report 7627162-7 (Version None)
Quarter: 2011Q3

REPORT INFORMATION
  Report Type: 
  Country: None (occurrence: None)
  Receive Date: 20110721
  Receipt Date: 20110716
  Transmission Date: 20111222
  Serious: No
  Sender: FDA-Public Use
  Company Number: US-BAYER-2011-050634

PATIENT
  Sex: Female

DRUGS (1)
  1. MIRENA [Suspect]
     Indication: CONTRACEPTION
     Dosage: 20 MCG/24HR, ONCE
     Route: 015
     Dates: start: 20100901

REACTIONS (7)
  - FEELING ABNORMAL [None]
  - DEVICE EXPULSION [None]
  - BREAST TENDERNESS [None]
  - MEDICAL DEVICE COMPLICATION [None]
  - UNEVALUABLE EVENT [None]
  - METRORRHAGIA [None]
  - FEELING JITTERY [None]
